FAERS Safety Report 9150138 (Version 1)
Quarter: 2013Q1

REPORT INFORMATION
  Report Type: Spontaneous
  Country: US (occurrence: None)
  Receive Date: 20130204
  Receipt Date: 20130204
  Transmission Date: 20140127
  Serious: Yes (Hospitalization)
  Sender: FDA-Public Use
  Company Number: 2013-000308

PATIENT
  Sex: Female

DRUGS (1)
  1. ATELVIA [Suspect]
     Indication: FRACTURE
     Dosage: 35MG ONCE WEEKLY, ORAL?ONGOING
     Route: 048

REACTIONS (10)
  - Syncope [None]
  - Malaise [None]
  - Asthenia [None]
  - Joint stiffness [None]
  - Dysphagia [None]
  - Throat irritation [None]
  - Cough [None]
  - Dry mouth [None]
  - Hunger [None]
  - Increased appetite [None]
